FAERS Safety Report 16902508 (Version 1)
Quarter: 2019Q4

REPORT INFORMATION
  Report Type: Spontaneous
  Country: CA (occurrence: CA)
  Receive Date: 20191010
  Receipt Date: 20191010
  Transmission Date: 20200122
  Serious: Yes (Other)
  Sender: FDA-Public Use
  Company Number: CA-PFIZER INC-2019414265

PATIENT
  Age: 55 Year
  Sex: Female

DRUGS (1)
  1. XELJANZ [Suspect]
     Active Substance: TOFACITINIB CITRATE
     Indication: PSORIATIC ARTHROPATHY
     Dosage: 5 MG, 2X/DAY
     Route: 048
     Dates: start: 20190918, end: 20190922

REACTIONS (8)
  - Dyspnoea [Unknown]
  - Pharyngeal disorder [Unknown]
  - Stomatitis [Unknown]
  - Purulent discharge [Unknown]
  - Malaise [Unknown]
  - Abdominal pain upper [Unknown]
  - Skin lesion [Unknown]
  - Hypersensitivity [Unknown]

NARRATIVE: CASE EVENT DATE: 201909
